FAERS Safety Report 4749603-5 (Version None)
Quarter: 2005Q3

REPORT INFORMATION
  Report Type: 
  Country: None (occurrence: None)
  Receive Date: 20050819
  Receipt Date: 20050819
  Transmission Date: 20060218
  Serious: Yes (Life-Threatening)
  Sender: FDA-Public Use
  Company Number: None

PATIENT
  Age: 82 Year
  Sex: Male
  Weight: 96.0265 kg

DRUGS (9)
  1. LEVAQUIN [Suspect]
     Indication: LUNG CONSOLIDATION
     Dosage: 500MG   ONCE DAILY   IV   (3 DOSES)
     Route: 042
     Dates: start: 20050731, end: 20050802
  2. ROCEPHIN [Concomitant]
  3. LEVAQUIN [Concomitant]
  4. METFORMIN HCL [Concomitant]
  5. GLYBURIDE [Concomitant]
  6. XALATAN HS [Concomitant]
  7. ATROVENT [Concomitant]
  8. O2 [Concomitant]
  9. SLIDING SCALE REGULAR INSULIN [Concomitant]

REACTIONS (2)
  - BLOOD GLUCOSE DECREASED [None]
  - BLOOD GLUCOSE INCREASED [None]
